FAERS Safety Report 5267362-7 (Version None)
Quarter: 2007Q1

REPORT INFORMATION
  Report Type: 
  Country: None (occurrence: None)
  Receive Date: 20070316
  Receipt Date: 20070309
  Transmission Date: 20070707
  Serious: Yes (Other)
  Sender: FDA-Public Use
  Company Number: JP-MERCK-0702USA03291

PATIENT
  Age: 72 Year
  Sex: Female

DRUGS (2)
  1. FOSAMAX [Suspect]
     Indication: OSTEOPOROSIS
     Route: 048
     Dates: start: 20061216, end: 20061216
  2. COUGH, COLD, AND FLU THERAPIES (UNSPECIFIED) [Suspect]
     Indication: NASOPHARYNGITIS
     Route: 048
     Dates: start: 20061215, end: 20061218

REACTIONS (1)
  - HYPERGLYCAEMIA [None]
